FAERS Safety Report 23065685 (Version 2)
Quarter: 2023Q4

REPORT INFORMATION
  Report Type: Spontaneous
  Country: US (occurrence: US)
  Receive Date: 20231014
  Receipt Date: 20231110
  Transmission Date: 20240110
  Serious: No
  Sender: FDA-Public Use
  Company Number: US-JNJFOC-20231012769

PATIENT
  Sex: Female

DRUGS (5)
  1. SIMPONI ARIA [Suspect]
     Active Substance: GOLIMUMAB
     Indication: Arthritis reactive
     Route: 041
  2. SIMPONI ARIA [Suspect]
     Active Substance: GOLIMUMAB
     Indication: Psoriatic arthropathy
  3. SIMPONI ARIA [Suspect]
     Active Substance: GOLIMUMAB
     Indication: Crohn^s disease
  4. SIMPONI ARIA [Suspect]
     Active Substance: GOLIMUMAB
     Indication: Spondyloarthropathy
  5. SIMPONI ARIA [Suspect]
     Active Substance: GOLIMUMAB
     Indication: Arthritis

REACTIONS (1)
  - Therapeutic product effect incomplete [Unknown]
